FAERS Safety Report 18259146 (Version 1)
Quarter: 2020Q3

REPORT INFORMATION
  Report Type: Spontaneous
  Country: US (occurrence: US)
  Receive Date: 20200911
  Receipt Date: 20200911
  Transmission Date: 20201103
  Serious: Yes (Other)
  Sender: FDA-Public Use
  Company Number: US-AMERICAN REGENT INC-2020001865

PATIENT
  Age: 66 Year
  Sex: Male

DRUGS (4)
  1. DOPAMINE HCL INJECTION, USP (1305?25) [Suspect]
     Active Substance: DOPAMINE HYDROCHLORIDE
     Indication: ATRIOVENTRICULAR BLOCK COMPLETE
     Dosage: UNK
     Route: 042
  2. ATROPINE SULFATE INJECTION, USP (0101?25) [Suspect]
     Active Substance: ATROPINE SULFATE
     Indication: ATRIOVENTRICULAR BLOCK COMPLETE
     Dosage: UNK
     Route: 042
  3. ATROPINE SULFATE INJECTION, USP (0101?25) [Suspect]
     Active Substance: ATROPINE SULFATE
     Indication: RHYTHM IDIOVENTRICULAR
  4. DOPAMINE HCL INJECTION, USP (1305?25) [Suspect]
     Active Substance: DOPAMINE HYDROCHLORIDE
     Indication: RHYTHM IDIOVENTRICULAR

REACTIONS (4)
  - Product use in unapproved indication [Unknown]
  - Drug ineffective for unapproved indication [Unknown]
  - Atrioventricular block complete [Unknown]
  - Rhythm idioventricular [Unknown]
